FAERS Safety Report 9296863 (Version 1)
Quarter: 2013Q2

REPORT INFORMATION
  Report Type: Spontaneous
  Country: US (occurrence: US)
  Receive Date: 20130517
  Receipt Date: 20130517
  Transmission Date: 20140414
  Serious: No
  Sender: FDA-Public Use
  Company Number: US-PFIZER INC-2013151289

PATIENT
  Age: 74 Year
  Sex: Female

DRUGS (11)
  1. LYRICA [Suspect]
     Dosage: 50 MG, 1X/DAY (DAILY)
  2. ASA [Concomitant]
     Dosage: 81 MG, UNK
  3. CHLORTHALIDONE [Concomitant]
     Dosage: 25 MG, UNK
  4. FLEXERIL [Concomitant]
     Dosage: 5 MG, 3X/DAY (TID)
  5. PRILOSEC [Concomitant]
     Dosage: 20 MG, 2X/DAY (BID)
     Route: 048
  6. HYDROCODONE [Concomitant]
     Dosage: UNK, 75/150
  7. FLECAINIDE [Concomitant]
     Dosage: 100 MG, UNK
  8. LISINOPRIL [Concomitant]
     Dosage: 20 UNK,
  9. ATENOLOL [Concomitant]
     Dosage: 25 MG, UNK
  10. GLIMEPIRIDE [Concomitant]
     Dosage: 2 MG, UNK
  11. SIMVASTATIN [Concomitant]
     Dosage: 20 MG, UNK

REACTIONS (2)
  - Limb discomfort [Unknown]
  - Withdrawal syndrome [Unknown]
